FAERS Safety Report 5736547-5 (Version None)
Quarter: 2008Q2

REPORT INFORMATION
  Report Type: 
  Country: None (occurrence: None)
  Receive Date: 20080508
  Receipt Date: 20080424
  Transmission Date: 20081010
  Serious: Yes (Death)
  Sender: FDA-Public Use
  Company Number: WAES 0804USA06088

PATIENT

DRUGS (4)
  1. DECADRON [Suspect]
     Indication: ACUTE LYMPHOCYTIC LEUKAEMIA
     Dosage: 6 MG/M[2]/DAILY/PO
     Route: 048
  2. ELSPAR [Suspect]
     Indication: ACUTE LYMPHOCYTIC LEUKAEMIA
     Dosage: IM
     Route: 030
  3. INFUSION (FORM) TOPOTECAN 2.4 MG/M[2] [Suspect]
     Indication: ACUTE LYMPHOCYTIC LEUKAEMIA
     Dosage: 2.4 MG/M[2] /DAILY/IV
     Route: 042
  4. VINCRISTINE SULFATE [Suspect]
     Indication: ACUTE LYMPHOCYTIC LEUKAEMIA
     Dosage: 1.5 MG/M[2] /DAILY/INJ

REACTIONS (1)
  - NO THERAPEUTIC RESPONSE [None]
